FAERS Safety Report 7353677-5 (Version None)
Quarter: 2011Q1

REPORT INFORMATION
  Report Type: 
  Country: None (occurrence: None)
  Receive Date: 20110315
  Receipt Date: 20100116
  Transmission Date: 20110831
  Serious: Yes (Death, Hospitalization, Other)
  Sender: FDA-Public Use
  Company Number: US-BAYER-201011048NA

PATIENT
  Sex: Male
  Weight: 77.098 kg

DRUGS (13)
  1. RED BLOOD CELLS [Concomitant]
     Indication: CORONARY ARTERY BYPASS
     Dosage: 10 UNITS
     Route: 042
     Dates: start: 19991203, end: 19991203
  2. NITROGLYCERIN [Concomitant]
     Indication: CORONARY ARTERY BYPASS
     Dosage: DRIP
     Route: 042
  3. HYDROCHLOROTHIAZIDE [Concomitant]
     Indication: PRODUCT USED FOR UNKNOWN INDICATION
     Dosage: 25 MG
     Route: 048
  4. LASIX [Concomitant]
     Indication: PRODUCT USED FOR UNKNOWN INDICATION
     Dosage: 100 MG
     Route: 042
  5. TRASYLOL [Suspect]
     Indication: CORONARY ARTERY BYPASS
     Dosage: 200 ML
     Route: 042
     Dates: start: 19991203, end: 19991203
  6. PLATELETS [Concomitant]
     Indication: CORONARY ARTERY BYPASS
     Dosage: 12 UNITS
  7. HYZAAR [Concomitant]
     Indication: PRODUCT USED FOR UNKNOWN INDICATION
  8. TOPROL-XL [Concomitant]
     Indication: PRODUCT USED FOR UNKNOWN INDICATION
  9. MORPHINE [Concomitant]
     Indication: CORONARY ARTERY BYPASS
     Dosage: DRIP
     Route: 042
  10. CEFUROXIME [Concomitant]
     Indication: CORONARY ARTERY BYPASS
     Dosage: 750 MG
     Route: 042
  11. PLASMA [Concomitant]
     Indication: CORONARY ARTERY BYPASS
     Dosage: 2 UNITS
     Dates: start: 19991203, end: 19991203
  12. HEPARIN [Concomitant]
     Indication: CORONARY ARTERY BYPASS
     Route: 042
  13. LOSARTAN [Concomitant]
     Indication: PRODUCT USED FOR UNKNOWN INDICATION
     Dosage: 25 MG
     Route: 048

REACTIONS (14)
  - CARDIAC DISORDER [None]
  - UNEVALUABLE EVENT [None]
  - DEPRESSION [None]
  - INJURY [None]
  - RENAL IMPAIRMENT [None]
  - ANXIETY [None]
  - DEATH [None]
  - FEAR [None]
  - PAIN [None]
  - CEREBROVASCULAR ACCIDENT [None]
  - ANHEDONIA [None]
  - RENAL INJURY [None]
  - RENAL FAILURE [None]
  - ORGAN FAILURE [None]
